FAERS Safety Report 14646081 (Version 1)
Quarter: 2018Q1

REPORT INFORMATION
  Report Type: Spontaneous
  Country: AT (occurrence: AT)
  Receive Date: 20180316
  Receipt Date: 20180316
  Transmission Date: 20180509
  Serious: Yes (Hospitalization)
  Sender: FDA-Public Use
  Company Number: AT-ROCHE-2088065

PATIENT
  Age: 73 Year
  Sex: Male
  Weight: 90 kg

DRUGS (2)
  1. TECENTRIQ [Suspect]
     Active Substance: ATEZOLIZUMAB
     Indication: BLADDER CANCER
     Route: 042
     Dates: start: 20171121, end: 20180213
  2. TECENTRIQ [Suspect]
     Active Substance: ATEZOLIZUMAB
     Indication: TRANSITIONAL CELL CARCINOMA

REACTIONS (1)
  - Thrombophlebitis [Recovering/Resolving]

NARRATIVE: CASE EVENT DATE: 20180306
